FAERS Safety Report 5275733-8 (Version None)
Quarter: 2007Q1

REPORT INFORMATION
  Report Type: 
  Country: None (occurrence: None)
  Receive Date: 20061213
  Receipt Date: 20040225
  Transmission Date: 20070707
  Serious: No
  Sender: FDA-Public Use
  Company Number: 2004UW03389

PATIENT
  Age: 27 Year
  Sex: Male
  Weight: 93.441 kg

DRUGS (3)
  1. SEROQUEL [Suspect]
     Indication: ASPERGER'S DISORDER
     Dosage: 600 MG QD PO
     Route: 048
     Dates: start: 20050101
  2. LEXAPRO [Concomitant]
  3. ZYPREXA [Concomitant]

REACTIONS (6)
  - BLOOD CHOLESTEROL INCREASED [None]
  - BLOOD TRIGLYCERIDES INCREASED [None]
  - CATARACT [None]
  - IMPAIRED HEALING [None]
  - OEDEMA [None]
  - WEIGHT INCREASED [None]
